FAERS Safety Report 10638390 (Version 1)
Quarter: 2014Q4

REPORT INFORMATION
  Report Type: Spontaneous
  Country: NZ (occurrence: NZ)
  Receive Date: 20141208
  Receipt Date: 20141208
  Transmission Date: 20150529
  Serious: Yes (Death, Hospitalization, Other)
  Sender: FDA-Public Use
  Company Number: NZ-B.I. PHARMACEUTICALS,INC./RIDGEFIELD-2014-BI-58935AU

PATIENT
  Age: 82 Year
  Sex: Male

DRUGS (1)
  1. PRADAXA [Suspect]
     Active Substance: DABIGATRAN ETEXILATE MESYLATE
     Indication: PRODUCT USED FOR UNKNOWN INDICATION
     Route: 065

REACTIONS (8)
  - Haematuria [Unknown]
  - Pneumonia [Unknown]
  - Acute kidney injury [Unknown]
  - Dyspnoea [Unknown]
  - Off label use [Unknown]
  - Death [Fatal]
  - Cardiac failure [Unknown]
  - Anaemia [Unknown]
